FAERS Safety Report 9084278 (Version 1)
Quarter: 2013Q1

REPORT INFORMATION
  Report Type: Report from Study
  Country: US (occurrence: US)
  Receive Date: 20130130
  Receipt Date: 20130130
  Transmission Date: 20140127
  Serious: No
  Sender: FDA-Public Use
  Company Number: US-ABBOTT-12P-163-0984130-00

PATIENT
  Sex: Female
  Weight: 56.75 kg

DRUGS (12)
  1. HUMIRA [Suspect]
     Indication: CROHN^S DISEASE
     Route: 058
     Dates: start: 200908
  2. AVISTA [Concomitant]
     Indication: PRODUCT USED FOR UNKNOWN INDICATION
  3. PRENATAL VITAMINS [Concomitant]
     Indication: PRODUCT USED FOR UNKNOWN INDICATION
  4. OS CAL [Concomitant]
     Indication: PRODUCT USED FOR UNKNOWN INDICATION
  5. ONDANSETRON [Concomitant]
     Indication: NAUSEA
  6. AMITIZA [Concomitant]
     Indication: CONSTIPATION
  7. ZOPIDEM [Concomitant]
     Indication: PRODUCT USED FOR UNKNOWN INDICATION
  8. NORTRIPTYLINE [Concomitant]
     Indication: TRIGEMINAL NEURALGIA
  9. PRISTIQ [Concomitant]
     Indication: DEPRESSION
  10. MORPHINE SULFATE ER [Concomitant]
     Indication: TRIGEMINAL NEURALGIA
  11. LYRICA [Concomitant]
     Indication: PRODUCT USED FOR UNKNOWN INDICATION
  12. MIRALEX [Concomitant]
     Indication: PRODUCT USED FOR UNKNOWN INDICATION

REACTIONS (1)
  - Blood glucose increased [Not Recovered/Not Resolved]
